FAERS Safety Report 9788552 (Version 1)
Quarter: 2013Q4

REPORT INFORMATION
  Report Type: Spontaneous
  Country: GB (occurrence: GB)
  Receive Date: 20131230
  Receipt Date: 20131230
  Transmission Date: 20140711
  Serious: Yes (Disabling)
  Sender: FDA-Public Use
  Company Number: GB-ASTRAZENECA-2013SE93253

PATIENT
  Age: 67 Year
  Sex: Female

DRUGS (9)
  1. OMEPRAZOLE [Suspect]
     Route: 048
  2. CIPROFLOXACIN [Suspect]
     Route: 048
     Dates: start: 20111222, end: 20111222
  3. CIPROFLOXACIN [Suspect]
     Dates: start: 20111222
  4. TEICOPLANIN [Suspect]
     Dates: start: 20111222, end: 20111222
  5. TEICOPLANIN [Suspect]
     Route: 042
     Dates: start: 20111223, end: 20111229
  6. CEFUROXIME [Concomitant]
     Dates: start: 20111128, end: 20111128
  7. GENTAMICIN [Concomitant]
     Indication: URINARY TRACT INFECTION
     Dosage: 7 DAYS
  8. GENTAMICIN [Concomitant]
     Indication: WOUND INFECTION
     Dosage: 7 DAYS
  9. TRIMETHOPRIM [Concomitant]
     Dates: start: 20111101

REACTIONS (1)
  - Clostridium difficile infection [Recovered/Resolved]
